FAERS Safety Report 9925864 (Version 2)
Quarter: 2014Q1

REPORT INFORMATION
  Report Type: Report from Study
  Country: JP (occurrence: JP)
  Receive Date: 20140226
  Receipt Date: 20140314
  Transmission Date: 20141002
  Serious: Yes (Death, Other)
  Sender: FDA-Public Use
  Company Number: JP-TAKEDA-2014TJP001843

PATIENT
  Age: 78 Year
  Sex: Male
  Weight: 57 kg

DRUGS (4)
  1. PIOGLITAZONE, GLIMEPIRIDE [Suspect]
     Indication: TYPE 2 DIABETES MELLITUS
     Dosage: 1 DF, QD
     Route: 048
     Dates: start: 20111028, end: 20120804
  2. BLOPRESS [Concomitant]
     Dosage: UNK
     Route: 048
  3. CADUET [Concomitant]
     Dosage: UNK
     Route: 048
  4. ANPLAG [Concomitant]
     Dosage: UNK
     Route: 048

REACTIONS (1)
  - Lung neoplasm malignant [Fatal]
